FAERS Safety Report 4968969-4 (Version None)
Quarter: 2006Q2

REPORT INFORMATION
  Report Type: 
  Country: None (occurrence: None)
  Receive Date: 20060405
  Receipt Date: 20060320
  Transmission Date: 20061013
  Serious: Yes (Hospitalization)
  Sender: FDA-Public Use
  Company Number: 2006PL000007

PATIENT
  Sex: Male

DRUGS (2)
  1. MERCAPTOPURINE [Suspect]
     Indication: CROHN'S DISEASE
     Dosage: 1.5 MG/KG; QD; PO
     Route: 048
  2. ASACOL [Concomitant]

REACTIONS (4)
  - APLASTIC ANAEMIA [None]
  - CONDITION AGGRAVATED [None]
  - CROHN'S DISEASE [None]
  - INFECTION [None]
